FAERS Safety Report 9022309 (Version 2)
Quarter: 2013Q1

REPORT INFORMATION
  Report Type: Spontaneous
  Country: US (occurrence: US)
  Receive Date: 20130118
  Receipt Date: 20130126
  Transmission Date: 20140127
  Serious: No
  Sender: FDA-Public Use
  Company Number: US-009507513-1301USA005389

PATIENT
  Age: 19 Year
  Sex: Female
  Weight: 47.62 kg

DRUGS (2)
  1. IMPLANON [Suspect]
     Indication: CONTRACEPTION
     Dosage: UNK
     Route: 059
     Dates: start: 20101118
  2. BUTALBITAL [Concomitant]

REACTIONS (2)
  - Chest pain [Unknown]
  - Hypoaesthesia [Unknown]
